FAERS Safety Report 18462933 (Version 1)
Quarter: 2020Q4

REPORT INFORMATION
  Report Type: Report from Study
  Country: US (occurrence: US)
  Receive Date: 20201104
  Receipt Date: 20201104
  Transmission Date: 20210114
  Serious: Yes (Other)
  Sender: FDA-Public Use
  Company Number: US-PFIZER INC-2020406179

PATIENT
  Age: 61 Year
  Sex: Female

DRUGS (1)
  1. IBRANCE [Suspect]
     Active Substance: PALBOCICLIB
     Indication: BREAST CANCER FEMALE
     Dosage: 125 MG, CYCLIC (125 MG DAILY FOR 21 DAYS OF 28 DAY CYCLE)
     Route: 048
     Dates: start: 20201009, end: 20201026

REACTIONS (7)
  - Hypokalaemia [Unknown]
  - Sciatica [Unknown]
  - Abdominal pain [Unknown]
  - Hot flush [Unknown]
  - Hypocalcaemia [Unknown]
  - Eating disorder [Unknown]
  - Insomnia [Unknown]
